FAERS Safety Report 15802792 (Version 1)
Quarter: 2019Q1

REPORT INFORMATION
  Report Type: Spontaneous
  Country: US (occurrence: US)
  Receive Date: 20190108
  Receipt Date: 20190108
  Transmission Date: 20190417
  Serious: Yes (Hospitalization)
  Sender: FDA-Public Use
  Company Number: None

PATIENT
  Sex: Female

DRUGS (6)
  1. CYCLOPHOSPHAMIDE. [Suspect]
     Active Substance: CYCLOPHOSPHAMIDE
     Dates: end: 20181206
  2. CYTARABINE. [Suspect]
     Active Substance: CYTARABINE
     Dates: end: 20181216
  3. PEG-L-ASPARAGINASE [Suspect]
     Active Substance: PEGASPARGASE
  4. VINCRISTINE SULFATE. [Suspect]
     Active Substance: VINCRISTINE SULFATE
  5. METHOTREXATE. [Suspect]
     Active Substance: METHOTREXATE
  6. MERCAPTOPURINE. [Suspect]
     Active Substance: MERCAPTOPURINE
     Dates: end: 20181220

REACTIONS (15)
  - Pyrexia [None]
  - Vomiting [None]
  - Febrile neutropenia [None]
  - Acute kidney injury [None]
  - Respiratory distress [None]
  - Disseminated intravascular coagulation [None]
  - Pleural effusion [None]
  - Septic shock [None]
  - Infection [None]
  - Hypotension [None]
  - Pulmonary oedema [None]
  - Multiple organ dysfunction syndrome [None]
  - Pneumonia [None]
  - Bradycardia [None]
  - Respiratory failure [None]
